FAERS Safety Report 14378111 (Version 1)
Quarter: 2018Q1

REPORT INFORMATION
  Report Type: Spontaneous
  Country: JP (occurrence: JP)
  Receive Date: 20180111
  Receipt Date: 20180111
  Transmission Date: 20180509
  Serious: Yes (Death)
  Sender: FDA-Public Use
  Company Number: JP-BIOMARINAP-JP-2018-116684

PATIENT
  Age: 26 Year
  Sex: Male
  Weight: 42 kg

DRUGS (4)
  1. ALDURAZYME [Suspect]
     Active Substance: LARONIDASE
     Indication: MUCOPOLYSACCHARIDOSIS I
     Dosage: UNK
     Route: 041
     Dates: end: 20171227
  2. CALONAL [Concomitant]
     Active Substance: ACETAMINOPHEN
     Indication: PREMEDICATION
     Dosage: UNK
     Dates: start: 20171227, end: 20171227
  3. RESTAMIN                           /00000401/ [Concomitant]
     Active Substance: DIPHENHYDRAMINE
     Indication: PREMEDICATION
     Dosage: UNK
     Dates: start: 20171227, end: 20171227
  4. MUCODYNE [Suspect]
     Active Substance: CARBOCYSTEINE
     Indication: PRODUCTIVE COUGH
     Dosage: UNK
     Route: 048
     Dates: start: 20171215, end: 20171229

REACTIONS (2)
  - Asphyxia [Fatal]
  - Upper respiratory tract inflammation [Not Recovered/Not Resolved]

NARRATIVE: CASE EVENT DATE: 20171229
